FAERS Safety Report 16886183 (Version 1)
Quarter: 2019Q4

REPORT INFORMATION
  Report Type: Spontaneous
  Country: US (occurrence: US)
  Receive Date: 20191004
  Receipt Date: 20191004
  Transmission Date: 20200122
  Serious: No
  Sender: FDA-Public Use
  Company Number: US-ELI_LILLY_AND_COMPANY-US201910000653

PATIENT
  Sex: Female

DRUGS (2)
  1. TRULICITY [Suspect]
     Active Substance: DULAGLUTIDE
     Indication: TYPE 2 DIABETES MELLITUS
     Dosage: 0.75 MG, UNKNOWN
     Route: 065
     Dates: start: 201809
  2. TRULICITY [Suspect]
     Active Substance: DULAGLUTIDE
     Dosage: 1.50 MG, UNKNOWN
     Route: 065

REACTIONS (2)
  - Abdominal discomfort [Recovered/Resolved]
  - Malaise [Recovered/Resolved]
